FAERS Safety Report 9166992 (Version 7)
Quarter: 2014Q3

REPORT INFORMATION
  Report Type: Report from Study
  Country: US (occurrence: US)
  Receive Date: 20130317
  Receipt Date: 20140929
  Transmission Date: 20150326
  Serious: Yes (Death, Hospitalization, Other)
  Sender: FDA-Public Use
  Company Number: US-TEVA-391741USA

PATIENT
  Age: 82 Year
  Sex: Female

DRUGS (18)
  1. AVAPRO [Concomitant]
     Active Substance: IRBESARTAN
     Indication: HYPERTENSION
     Dates: start: 1991, end: 20100911
  2. METRONIDAZOLE. [Concomitant]
     Active Substance: METRONIDAZOLE
     Indication: COLITIS
  3. METOPROLOL [Concomitant]
     Active Substance: METOPROLOL
  4. PEGFILGRASTIM [Concomitant]
     Active Substance: PEGFILGRASTIM
     Indication: WHITE BLOOD CELL COUNT DECREASED
     Dates: start: 20100724, end: 20100724
  5. HYDROCHLOROTHIAZIDE. [Concomitant]
     Active Substance: HYDROCHLOROTHIAZIDE
     Indication: HYPERTENSION
     Dates: start: 1991, end: 20100911
  6. HYDROMORPHONE HYDROCHLORIDE. [Concomitant]
     Active Substance: HYDROMORPHONE HYDROCHLORIDE
     Indication: PAIN
  7. VITAMIN D [Concomitant]
     Active Substance: CHOLECALCIFEROL
  8. LORATADINE. [Concomitant]
     Active Substance: LORATADINE
     Indication: HYPERSENSITIVITY
     Dates: start: 2000, end: 20100911
  9. CEFTAZIDIME. [Concomitant]
     Active Substance: CEFTAZIDIME
     Indication: COLITIS
  10. CIPROFLOXACIN. [Concomitant]
     Active Substance: CIPROFLOXACIN
     Indication: COLITIS
  11. HYDROCORTISONE. [Concomitant]
     Active Substance: HYDROCORTISONE
  12. CULTURELLE-HERBAL, HOMEOPATHIC AND DIETARY SUPPLEMENTS [Concomitant]
     Indication: CONSTIPATION
     Dates: start: 20100625, end: 20100911
  13. ASPIRIN. [Concomitant]
     Active Substance: ASPIRIN
     Indication: HYPERTENSION
     Dates: start: 2002, end: 20100911
  14. VANCOMYCIN [Concomitant]
     Active Substance: VANCOMYCIN
     Indication: PNEUMONIA
  15. CALCIUM [Concomitant]
     Active Substance: CALCIUM
  16. TREANDA [Suspect]
     Active Substance: BENDAMUSTINE HYDROCHLORIDE
     Indication: NON-HODGKIN^S LYMPHOMA
     Dosage: Q28D
     Route: 042
     Dates: start: 20100428, end: 20100818
  17. DOCUSATE SODIUM. [Concomitant]
     Active Substance: DOCUSATE SODIUM
     Indication: CONSTIPATION
     Dates: start: 20100529, end: 20100911
  18. DILTIAZEM [Concomitant]
     Active Substance: DILTIAZEM
     Indication: ATRIAL FIBRILLATION

REACTIONS (5)
  - Leukopenia [Fatal]
  - Systemic inflammatory response syndrome [Not Recovered/Not Resolved]
  - Sepsis [Fatal]
  - Atrial fibrillation [Unknown]
  - Atrial fibrillation [Recovered/Resolved]

NARRATIVE: CASE EVENT DATE: 20100818
